APPROVED DRUG PRODUCT: ALBUTEROL SULFATE
Active Ingredient: ALBUTEROL SULFATE
Strength: EQ 0.083% BASE
Dosage Form/Route: SOLUTION;INHALATION
Application: A206224 | Product #001 | TE Code: AN
Applicant: LUOXIN AUROVITAS PHARMA CHENGDU CO LTD
Approved: Oct 17, 2017 | RLD: No | RS: No | Type: RX